FAERS Safety Report 9792145 (Version 1)
Quarter: 2013Q4

REPORT INFORMATION
  Report Type: Spontaneous
  Country: US (occurrence: None)
  Receive Date: 20131231
  Receipt Date: 20131231
  Transmission Date: 20140711
  Serious: Yes (Hospitalization)
  Sender: FDA-Public Use
  Company Number: None

PATIENT
  Age: 64 Year
  Sex: Female
  Weight: 57.6 kg

DRUGS (5)
  1. TAXOL [Suspect]
     Route: 042
     Dates: start: 20131028, end: 20131230
  2. 5FU [Suspect]
     Route: 042
     Dates: start: 20131028, end: 20131230
  3. TAXOL [Concomitant]
  4. 5FU [Concomitant]
  5. HYDREA [Concomitant]

REACTIONS (3)
  - Confusional state [None]
  - Nausea [None]
  - Vomiting [None]
